FAERS Safety Report 13020421 (Version 2)
Quarter: 2016Q4

REPORT INFORMATION
  Report Type: Spontaneous
  Country: JP (occurrence: JP)
  Receive Date: 20161212
  Receipt Date: 20161222
  Transmission Date: 20170207
  Serious: Yes (Other)
  Sender: FDA-Public Use
  Company Number: PHJP2016JP035280

PATIENT
  Age: 70 Year
  Sex: Female

DRUGS (4)
  1. AMANTADINE [Suspect]
     Active Substance: AMANTADINE
     Indication: APATHY
     Dosage: 50 MG, QD
     Route: 048
  2. MAGNESIUM OXIDE. [Concomitant]
     Active Substance: MAGNESIUM OXIDE
     Indication: CONSTIPATION
     Dosage: 500 MG, QD
     Route: 065
  3. MAGNESIUM OXIDE. [Concomitant]
     Active Substance: MAGNESIUM OXIDE
     Dosage: 750 MG, QD
     Route: 065
  4. AMANTADINE [Suspect]
     Active Substance: AMANTADINE
     Dosage: 150 MG, UNK
     Route: 048

REACTIONS (8)
  - Dysphagia [Unknown]
  - Concomitant disease progression [Unknown]
  - Tremor [Recovered/Resolved]
  - Renal impairment [Unknown]
  - Blood magnesium increased [Unknown]
  - Speech disorder [Unknown]
  - Toxicity to various agents [Recovering/Resolving]
  - Decreased appetite [Recovered/Resolved]
